FAERS Safety Report 6071457-8 (Version None)
Quarter: 2009Q1

REPORT INFORMATION
  Report Type: 
  Country: None (occurrence: None)
  Receive Date: 20090209
  Receipt Date: 20090128
  Transmission Date: 20090719
  Serious: Yes (Death)
  Sender: FDA-Public Use
  Company Number: US-RANBAXY-2009RR-21449

PATIENT
  Age: 61 Year
  Sex: Female

DRUGS (2)
  1. CLINDAMYCIN HCL [Suspect]
  2. LEVOFLOXACIN [Suspect]

REACTIONS (1)
  - CHOLESTATIC LIVER INJURY [None]
